FAERS Safety Report 15524961 (Version 2)
Quarter: 2018Q4

REPORT INFORMATION
  Report Type: Report from Study
  Country: US (occurrence: US)
  Receive Date: 20181019
  Receipt Date: 20181109
  Transmission Date: 20190205
  Serious: Yes (Hospitalization)
  Sender: FDA-Public Use
  Company Number: US-PFIZER INC-2018370700

PATIENT
  Age: 77 Year
  Sex: Female

DRUGS (1)
  1. IBRANCE [Suspect]
     Active Substance: PALBOCICLIB
     Indication: BREAST CANCER
     Dosage: 100 MG, CYCLIC (DAILY, 21 DAYS ON, 7 DAYS OFF)
     Route: 048
     Dates: start: 20180903

REACTIONS (12)
  - Decreased appetite [Recovering/Resolving]
  - Condition aggravated [Unknown]
  - Fatigue [Not Recovered/Not Resolved]
  - Epistaxis [Unknown]
  - Malaise [Unknown]
  - Dehydration [Recovering/Resolving]
  - Herpes zoster [Recovering/Resolving]
  - White blood cell count decreased [Unknown]
  - Pleural effusion [Unknown]
  - Dyspnoea [Recovering/Resolving]
  - Alopecia [Unknown]
  - Paranasal sinus hypersecretion [Unknown]

NARRATIVE: CASE EVENT DATE: 2018
